FAERS Safety Report 8007466-9 (Version None)
Quarter: 2011Q4

REPORT INFORMATION
  Report Type: 
  Country: None (occurrence: None)
  Receive Date: 20111227
  Receipt Date: 20111214
  Transmission Date: 20120403
  Serious: Yes (Hospitalization, Other)
  Sender: FDA-Public Use
  Company Number: NZ-MPIJNJ-2011-06017

PATIENT

DRUGS (9)
  1. CODEINE [Concomitant]
     Dosage: 60 MG, UNK
  2. PANADOL                            /00020001/ [Concomitant]
     Indication: MULTIPLE MYELOMA
  3. VELCADE [Suspect]
     Indication: MULTIPLE MYELOMA
     Dosage: UNK
     Route: 042
  4. CALCITRIOL [Concomitant]
     Dosage: 0.35 MG, UNK
  5. DEXAMETHASONE [Suspect]
     Indication: MULTIPLE MYELOMA
  6. AMIODARONE HCL [Concomitant]
     Indication: ATRIAL FIBRILLATION
     Dosage: 200 MG, UNK
  7. CARDIZEM [Concomitant]
     Dosage: 120 MG, UNK
  8. CYCLOPHOSPHAMIDE [Concomitant]
     Indication: MULTIPLE MYELOMA
  9. WARFARIN [Concomitant]
     Indication: ATRIAL FIBRILLATION

REACTIONS (8)
  - ABNORMAL BEHAVIOUR [None]
  - SYSTEMIC LUPUS ERYTHEMATOSUS [None]
  - DISORIENTATION [None]
  - CONFUSIONAL STATE [None]
  - AGITATION [None]
  - ANAEMIA [None]
  - MEMORY IMPAIRMENT [None]
  - MOOD SWINGS [None]
